FAERS Safety Report 6006871-X (Version None)
Quarter: 2008Q4

REPORT INFORMATION
  Report Type: 
  Country: None (occurrence: None)
  Receive Date: 20081217
  Receipt Date: 20071112
  Transmission Date: 20090506
  Serious: No
  Sender: FDA-Public Use
  Company Number: US-ASTRAZENECA-2007UW26218

PATIENT
  Age: 59 Year
  Sex: Male
  Weight: 83.5 kg

DRUGS (1)
  1. CRESTOR [Suspect]
     Indication: HYPERCHOLESTEROLAEMIA
     Route: 048
     Dates: start: 20070901

REACTIONS (2)
  - ILL-DEFINED DISORDER [None]
  - MYALGIA [None]
